FAERS Safety Report 5731831-3 (Version None)
Quarter: 2008Q2

REPORT INFORMATION
  Report Type: 
  Country: None (occurrence: None)
  Receive Date: 20080508
  Receipt Date: 20080502
  Transmission Date: 20081010
  Serious: Yes (Other)
  Sender: FDA-Public Use
  Company Number: A0726855A

PATIENT
  Age: 77 Year
  Sex: Male

DRUGS (3)
  1. ADVAIR HFA [Suspect]
     Route: 055
  2. SPIRIVA [Concomitant]
  3. CONCURRENT MEDICATIONS [Concomitant]

REACTIONS (4)
  - ACNE [None]
  - BLISTER [None]
  - SKIN ATROPHY [None]
  - SKIN DISCOLOURATION [None]
